FAERS Safety Report 8764631 (Version 1)
Quarter: 2012Q4

REPORT INFORMATION
  Report Type: 
  Country: CN (occurrence: CN)
  Receive Date: 20120831
  Receipt Date: 20120831
  Transmission Date: 20130627
  Serious: Yes (Hospitalization)
  Sender: FDA-Public Use
  Company Number: CN-ASTRAZENECA-2012SE63819

PATIENT
  Sex: Male
  Weight: 79 kg

DRUGS (15)
  1. ROSUVASTATIN CALCIUM [Suspect]
     Indication: LIPIDS INCREASED
     Route: 048
     Dates: start: 20100720, end: 20100725
  2. ROSUVASTATIN CALCIUM [Suspect]
     Indication: VENOUS INSUFFICIENCY
     Route: 048
     Dates: start: 20100720, end: 20100725
  3. ROSUVASTATIN CALCIUM [Suspect]
     Indication: DIZZINESS
     Route: 048
     Dates: start: 20100720, end: 20100725
  4. ROSUVASTATIN CALCIUM [Suspect]
     Indication: CEREBRAL DISORDER
     Route: 048
     Dates: start: 20100720, end: 20100725
  5. ROSUVASTATIN CALCIUM [Suspect]
     Indication: ASTHENIA
     Route: 048
     Dates: start: 20100720, end: 20100725
  6. ROSUVASTATIN CALCIUM [Suspect]
     Indication: PH BODY FLUID DECREASED
     Route: 048
     Dates: start: 20100720, end: 20100725
  7. ROSUVASTATIN CALCIUM [Suspect]
     Indication: CARDIOVASCULAR DISORDER
     Route: 048
     Dates: start: 20100720, end: 20100725
  8. ROSUVASTATIN CALCIUM [Suspect]
     Indication: ANTIPLATELET THERAPY
     Route: 048
     Dates: start: 20100720, end: 20100725
  9. MAIZHILING [Concomitant]
     Route: 048
     Dates: start: 20100719, end: 20100730
  10. XUANYUNNING [Concomitant]
     Dosage: 3 three times a day
     Route: 048
     Dates: start: 20100719, end: 20100730
  11. TONGTIAN ORAL LIQUID [Concomitant]
     Route: 048
     Dates: start: 20100719, end: 20100730
  12. SHENMAI INJECTION [Concomitant]
     Dates: start: 20100719, end: 20100721
  13. GINKGO LEAF EXTRACT [Concomitant]
     Dates: start: 20100719, end: 20100730
  14. GUANXINNING INJECTION [Concomitant]
     Dates: start: 20100721, end: 20100730
  15. DIPYRIDAMOLE INJECTION [Concomitant]

REACTIONS (5)
  - Cerebral ischaemia [Unknown]
  - Hyperhidrosis [Recovering/Resolving]
  - Dizziness [Recovering/Resolving]
  - Headache [Recovering/Resolving]
  - Asthenia [Recovering/Resolving]
